FAERS Safety Report 12562550 (Version 1)
Quarter: 2016Q3

REPORT INFORMATION
  Report Type: Spontaneous
  Country: US (occurrence: US)
  Receive Date: 20160715
  Receipt Date: 20160715
  Transmission Date: 20161109
  Serious: No
  Sender: FDA-Public Use
  Company Number: US-NOVOPROD-489529

PATIENT
  Sex: Male

DRUGS (4)
  1. TRESIBA FLEXTOUCH U200 [Suspect]
     Active Substance: INSULIN DEGLUDEC
     Dosage: DECREASED DOSE
     Route: 058
  2. HUMALOG [Suspect]
     Active Substance: INSULIN LISPRO
     Indication: PRODUCT USED FOR UNKNOWN INDICATION
     Route: 058
  3. TRESIBA FLEXTOUCH U200 [Suspect]
     Active Substance: INSULIN DEGLUDEC
     Indication: PRODUCT USED FOR UNKNOWN INDICATION
     Dosage: 136 U, QD
     Route: 058
  4. HUMALOG [Suspect]
     Active Substance: INSULIN LISPRO
     Dosage: DECREASED DOSE
     Route: 058

REACTIONS (1)
  - Hypoglycaemia [Recovered/Resolved]
